FAERS Safety Report 12391608 (Version 2)
Quarter: 2016Q2

REPORT INFORMATION
  Report Type: Spontaneous
  Country: US (occurrence: US)
  Receive Date: 20160521
  Receipt Date: 20160601
  Transmission Date: 20160815
  Serious: No
  Sender: FDA-Public Use
  Company Number: US-009507513-1605USA008670

PATIENT
  Age: 20 Year
  Sex: Female
  Weight: 82.99 kg

DRUGS (3)
  1. METFORMIN [Concomitant]
     Active Substance: METFORMIN HYDROCHLORIDE
     Dosage: 100 MG, QD
  2. NEXPLANON [Suspect]
     Active Substance: ETONOGESTREL
     Indication: CONTRACEPTION
     Dosage: 1 ROD, UNK
     Route: 059
     Dates: start: 201508, end: 20160517
  3. CELEXA [Concomitant]
     Active Substance: CITALOPRAM HYDROBROMIDE
     Dosage: UNK, QD

REACTIONS (2)
  - Implant site pain [Unknown]
  - Device breakage [Recovered/Resolved]

NARRATIVE: CASE EVENT DATE: 20160516
